FAERS Safety Report 12114434 (Version 2)
Quarter: 2016Q2

REPORT INFORMATION
  Report Type: Spontaneous
  Country: US (occurrence: US)
  Receive Date: 20160225
  Receipt Date: 20160618
  Transmission Date: 20160815
  Serious: Yes (Hospitalization)
  Sender: FDA-Public Use
  Company Number: US-ASTRAZENECA-2016SE17889

PATIENT
  Age: 20072 Day
  Sex: Male
  Weight: 127 kg

DRUGS (39)
  1. LASIX [Concomitant]
     Active Substance: FUROSEMIDE
     Indication: MYOCARDIAL INFARCTION
     Route: 048
     Dates: start: 201512
  2. POLYETHYLENE GLYCOL [Concomitant]
     Active Substance: POLYETHYLENE GLYCOLS
     Dosage: 1 PACKET ORAL DAILY PRN
     Route: 048
  3. PRILOSEC [Suspect]
     Active Substance: OMEPRAZOLE MAGNESIUM
     Indication: GASTROOESOPHAGEAL REFLUX DISEASE
     Route: 048
     Dates: start: 201503
  4. BRILINTA [Suspect]
     Active Substance: TICAGRELOR
     Indication: CORONARY ARTERY DISEASE
     Route: 048
     Dates: start: 20151215, end: 20160229
  5. OMEPRAZOLE OTC [Concomitant]
     Active Substance: OMEPRAZOLE
     Route: 048
  6. FLNASTERLDE [Concomitant]
     Dosage: S MG ORAL DAILY
     Route: 048
  7. NITROGLYCERIN. [Concomitant]
     Active Substance: NITROGLYCERIN
     Dosage: 0.4 MG SUBLINGUAL QS MIN PRN
     Route: 060
  8. ASPIRIN. [Concomitant]
     Active Substance: ASPIRIN
     Route: 048
     Dates: start: 20151217
  9. ENOXAPARLN [Concomitant]
     Dosage: 1 MG/KG SUBCUTANEOUS Q12H
     Route: 058
  10. HYDROCODONE [Concomitant]
     Active Substance: HYDROCODONE
     Dosage: 1 TABLET ORAL ASH F^RN
     Route: 048
  11. SODIUM CHLORIDE. [Concomitant]
     Active Substance: SODIUM CHLORIDE
     Dosage: 10 ML INTRAVENOUS PRN
     Route: 042
  12. NALOXONE [Concomitant]
     Active Substance: NALOXONE
     Dosage: .04 MG INTRAVENOUS PRN
     Route: 042
  13. ONDANSETRON [Concomitant]
     Active Substance: ONDANSETRON
     Dosage: PF 4MG INTRAVENOUS Q4H PRN
     Route: 042
  14. PRED FORTE 1 PERCENT EYE DROPS [Concomitant]
     Indication: CORNEAL TRANSPLANT
     Dosage: DAILY
  15. PROSCAR [Concomitant]
     Active Substance: FINASTERIDE
     Route: 048
  16. THERAGRAN [Concomitant]
     Active Substance: VITAMINS
     Route: 048
  17. PRILOSEC [Suspect]
     Active Substance: OMEPRAZOLE MAGNESIUM
     Indication: BARRETT^S OESOPHAGUS
     Route: 048
     Dates: start: 201503
  18. MORPHINE [Concomitant]
     Active Substance: MORPHINE
     Dosage: 4MG INTRAVENOUS Q2H F^RN
     Route: 042
  19. NITROGLYCERIN. [Concomitant]
     Active Substance: NITROGLYCERIN
     Dosage: 1 INCH TOPICAL 41IMES PER DAY
     Route: 061
  20. PANTOPRAZOLE [Concomitant]
     Active Substance: PANTOPRAZOLE SODIUM
     Dosage: 40 MG ORAL HS
     Route: 048
  21. PAXIL [Concomitant]
     Active Substance: PAROXETINE HYDROCHLORIDE
     Route: 048
  22. METOPROLOL TARTRATE. [Concomitant]
     Active Substance: METOPROLOL TARTRATE
     Indication: HEART RATE INCREASED
     Dates: start: 201512
  23. PRED MILD 12 PERCENT EYE DROPS [Concomitant]
     Indication: CORNEAL TRANSPLANT
     Dosage: THREE TIMES A WEEK
     Route: 047
  24. LOPRESSOR [Concomitant]
     Active Substance: METOPROLOL TARTRATE
     Route: 048
     Dates: start: 20151217
  25. SENNA-DOOUSATE [Concomitant]
  26. BRILINTA [Suspect]
     Active Substance: TICAGRELOR
     Indication: MYOCARDIAL INFARCTION
     Route: 048
     Dates: start: 20151215, end: 20160229
  27. BRILINTA [Suspect]
     Active Substance: TICAGRELOR
     Indication: STENT PLACEMENT
     Route: 048
     Dates: start: 20151215, end: 20160229
  28. COZAAR [Concomitant]
     Active Substance: LOSARTAN POTASSIUM
     Indication: BLOOD PRESSURE ABNORMAL
     Route: 048
  29. LIPITOR [Concomitant]
     Active Substance: ATORVASTATIN CALCIUM
     Route: 048
  30. ACETAMINOPHEN. [Concomitant]
     Active Substance: ACETAMINOPHEN
     Dosage: 650 MG ORAL Q6H PRN
     Route: 048
  31. BLSACODYL [Concomitant]
     Dosage: 10 MG RECTAL DAILY PRN
     Route: 054
  32. DEXTROSE. [Concomitant]
     Active Substance: DEXTROSE
     Dosage: 12.5-25 G INTRAVENOUS PRN
     Route: 042
  33. GLUCAGON. [Concomitant]
     Active Substance: GLUCAGON
     Dosage: (HUMAN 1 MG INTRAMUSCULAR PRNRECOMBINANT)
     Route: 030
  34. LIDOCAINE. [Concomitant]
     Active Substance: LIDOCAINE
     Dosage: 0.1ML AS REQUIRED
  35. BRILINTA [Suspect]
     Active Substance: TICAGRELOR
     Indication: ACUTE CORONARY SYNDROME
     Route: 048
     Dates: start: 20151215, end: 20160229
  36. CHIORHEXIDLNE [Concomitant]
     Dosage: 15 ML MOUTH/THROAT BID
     Route: 048
  37. GLUCOSE [Concomitant]
     Active Substance: DEXTROSE
     Dosage: 16 G ORAL PRN
     Route: 048
  38. DILTIAZEM [Concomitant]
     Active Substance: DILTIAZEM
     Dosage: 240 MG ORAL DALLY
     Route: 048
  39. SODIUM CHLORIDE. [Concomitant]
     Active Substance: SODIUM CHLORIDE
     Dosage: 10 ML
     Route: 042

REACTIONS (8)
  - Dyspnoea [Recovered/Resolved]
  - Nausea [Unknown]
  - Acute myocardial infarction [Unknown]
  - Cardiac failure congestive [Unknown]
  - Sinus bradycardia [Unknown]
  - Coronary artery stenosis [Unknown]
  - Abdominal distension [Unknown]
  - Product use issue [Unknown]

NARRATIVE: CASE EVENT DATE: 20151215
